FAERS Safety Report 15070162 (Version 1)
Quarter: 2018Q2

REPORT INFORMATION
  Report Type: Spontaneous
  Country: US (occurrence: US)
  Receive Date: 20180626
  Receipt Date: 20180626
  Transmission Date: 20180711
  Serious: Yes (Other)
  Sender: FDA-Public Use
  Company Number: US-AMGEN-USASP2018083834

PATIENT
  Age: 66 Year
  Sex: Female

DRUGS (1)
  1. PROLIA [Suspect]
     Active Substance: DENOSUMAB
     Indication: OSTEOPOROSIS
     Dosage: UNK
     Route: 065

REACTIONS (19)
  - Osteoarthritis [Unknown]
  - Gait inability [Unknown]
  - Dyspnoea [Unknown]
  - Walking aid user [Unknown]
  - Skin disorder [Unknown]
  - Cartilage injury [Unknown]
  - Throat tightness [Not Recovered/Not Resolved]
  - Tremor [Not Recovered/Not Resolved]
  - Arthralgia [Unknown]
  - Anxiety [Unknown]
  - Back pain [Unknown]
  - Sleep disorder due to a general medical condition [Unknown]
  - Cough [Not Recovered/Not Resolved]
  - Cystitis [Unknown]
  - Choking [Unknown]
  - Scab [Unknown]
  - Dysphagia [Not Recovered/Not Resolved]
  - Panic reaction [Unknown]
  - Eating disorder [Unknown]
